FAERS Safety Report 18458927 (Version 1)
Quarter: 2020Q4

REPORT INFORMATION
  Report Type: Spontaneous
  Country: US (occurrence: US)
  Receive Date: 20201103
  Receipt Date: 20201103
  Transmission Date: 20210114
  Serious: Yes (Other)
  Sender: FDA-Public Use
  Company Number: US-JNJFOC-20201042079

PATIENT
  Age: 56 Year
  Sex: Male

DRUGS (3)
  1. SPRAVATO [Suspect]
     Active Substance: ESKETAMINE
     Dosage: 84MG, 44 TOTAL DOSES
     Dates: start: 20190827, end: 20201006
  2. SPRAVATO [Suspect]
     Active Substance: ESKETAMINE
     Dosage: 84MG, RECENT DOSE
     Dates: start: 20201023, end: 20201023
  3. SPRAVATO [Suspect]
     Active Substance: ESKETAMINE
     Indication: DEPRESSION
     Dosage: 56MG, 4 TOTAL DOSES
     Dates: start: 20190814, end: 20190822

REACTIONS (4)
  - Product dose omission issue [Recovered/Resolved]
  - Suicidal ideation [Unknown]
  - Concussion [Unknown]
  - Fall [Unknown]

NARRATIVE: CASE EVENT DATE: 20201017
